FAERS Safety Report 5357094-9 (Version None)
Quarter: 2007Q2

REPORT INFORMATION
  Report Type: 
  Country: None (occurrence: None)
  Receive Date: 20070614
  Receipt Date: 20070611
  Transmission Date: 20071010
  Serious: Yes (Hospitalization)
  Sender: FDA-Public Use
  Company Number: GBWYE835712JUN07

PATIENT

DRUGS (2)
  1. EFFEXOR [Suspect]
     Dosage: UNKNOWN
  2. OLANZAPINE [Concomitant]
     Dosage: UNKNOWN

REACTIONS (1)
  - HISTIOCYTOSIS HAEMATOPHAGIC [None]
